FAERS Safety Report 6542827-6 (Version None)
Quarter: 2010Q1

REPORT INFORMATION
  Report Type: 
  Country: None (occurrence: None)
  Receive Date: 20100114
  Receipt Date: 20100105
  Transmission Date: 20100710
  Serious: Yes (Hospitalization)
  Sender: FDA-Public Use
  Company Number: 2010AL000041

PATIENT
  Age: 50 Year
  Sex: Male

DRUGS (4)
  1. PHENYTOIN [Suspect]
  2. NETILMICIN SULFATE [Concomitant]
  3. CHLORAMPHENICOL [Concomitant]
  4. NSAID'S [Concomitant]

REACTIONS (1)
  - TOXIC EPIDERMAL NECROLYSIS [None]
